FAERS Safety Report 9538073 (Version 1)
Quarter: 2013Q3

REPORT INFORMATION
  Report Type: Spontaneous
  Country: US (occurrence: US)
  Receive Date: 20130920
  Receipt Date: 20130920
  Transmission Date: 20140515
  Serious: No
  Sender: FDA-Public Use
  Company Number: US-009507513-1309USA005487

PATIENT
  Age: 28 Year
  Sex: Female

DRUGS (1)
  1. NEXPLANON [Suspect]
     Indication: CONTRACEPTION
     Dosage: UNK, ONE ROD FOR THREE YEARS
     Route: 059
     Dates: start: 20130830

REACTIONS (4)
  - Rash [Unknown]
  - Rash papular [Unknown]
  - Rash pruritic [Unknown]
  - Rash vesicular [Unknown]
